FAERS Safety Report 9255544 (Version 3)
Quarter: 2014Q1

REPORT INFORMATION
  Report Type: Spontaneous
  Country: US (occurrence: US)
  Receive Date: 20130425
  Receipt Date: 20140130
  Transmission Date: 20141002
  Serious: Yes (Hospitalization)
  Sender: FDA-Public Use
  Company Number: US-GLAXOSMITHKLINE-A1012431A

PATIENT
  Sex: Female

DRUGS (3)
  1. FLOLAN [Suspect]
     Indication: PULMONARY ARTERIAL HYPERTENSION
     Dosage: 54NGKM CONTINUOUS
     Route: 065
     Dates: start: 20061026
  2. LASIX [Concomitant]
  3. COUMADIN [Concomitant]

REACTIONS (5)
  - Dysentery [Unknown]
  - Fluid retention [Unknown]
  - Gastrooesophageal reflux disease [Unknown]
  - Headache [Unknown]
  - Investigation [Unknown]
